FAERS Safety Report 20203417 (Version 1)
Quarter: 2021Q4

REPORT INFORMATION
  Report Type: Spontaneous
  Country: GB (occurrence: GB)
  Receive Date: 20211218
  Receipt Date: 20211218
  Transmission Date: 20220303
  Serious: Yes (Other)
  Sender: FDA-Public Use
  Company Number: GB-NOVARTISPH-NVSC2021GB284630

PATIENT
  Age: 57 Year
  Sex: Female

DRUGS (4)
  1. DABRAFENIB [Suspect]
     Active Substance: DABRAFENIB
     Indication: Acral lentiginous melanoma
     Dosage: UNK
     Route: 065
  2. DABRAFENIB [Suspect]
     Active Substance: DABRAFENIB
     Indication: BRAF V600E mutation positive
  3. TRAMETINIB [Suspect]
     Active Substance: TRAMETINIB
     Indication: Acral lentiginous melanoma
     Dosage: UNK
     Route: 065
     Dates: start: 2018
  4. TRAMETINIB [Suspect]
     Active Substance: TRAMETINIB
     Indication: BRAF V600E mutation positive

REACTIONS (3)
  - Uveitis [Unknown]
  - Arthralgia [Unknown]
  - Fatigue [Unknown]
